FAERS Safety Report 7823342-6 (Version None)
Quarter: 2011Q4

REPORT INFORMATION
  Report Type: 
  Country: None (occurrence: None)
  Receive Date: 20111019
  Receipt Date: 20111007
  Transmission Date: 20120403
  Serious: Yes (Other)
  Sender: FDA-Public Use
  Company Number: PT-JNJFOC-20111005384

PATIENT
  Age: 69 Year
  Sex: Female

DRUGS (3)
  1. SIMVASTATIN [Concomitant]
     Indication: DYSLIPIDAEMIA
     Route: 065
  2. REMICADE [Suspect]
     Indication: RHEUMATOID ARTHRITIS
     Route: 042
     Dates: start: 20050101
  3. LISINOPRIL [Concomitant]
     Indication: HYPERTENSION
     Route: 065

REACTIONS (3)
  - SUBCUTANEOUS NODULE [None]
  - RED BLOOD CELL SEDIMENTATION RATE INCREASED [None]
  - HYPERGAMMAGLOBULINAEMIA BENIGN MONOCLONAL [None]
